FAERS Safety Report 4698623-8 (Version None)
Quarter: 2005Q2

REPORT INFORMATION
  Report Type: 
  Country: None (occurrence: None)
  Receive Date: 20050622
  Receipt Date: 20050610
  Transmission Date: 20051028
  Serious: Yes (Other)
  Sender: FDA-Public Use
  Company Number: 8010845

PATIENT
  Age: 45 Year
  Sex: Female

DRUGS (5)
  1. KEPPRA [Suspect]
     Indication: COMPLEX PARTIAL SEIZURES
     Dosage: 1000 MG /D PO
     Route: 048
     Dates: start: 20010417, end: 20030731
  2. KEPPRA [Suspect]
     Indication: COMPLEX PARTIAL SEIZURES
     Dosage: 3000 MG /D PO
     Route: 048
     Dates: start: 20030801
  3. DILANTIN [Concomitant]
  4. NEURONTIN [Concomitant]
  5. IBUPROFEN [Concomitant]

REACTIONS (1)
  - WHITE BLOOD CELL COUNT DECREASED [None]
